FAERS Safety Report 11723343 (Version 1)
Quarter: 2015Q4

REPORT INFORMATION
  Report Type: Spontaneous
  Country: US (occurrence: US)
  Receive Date: 20151111
  Receipt Date: 20151111
  Transmission Date: 20160304
  Serious: Yes (Hospitalization, Other)
  Sender: FDA-Public Use
  Company Number: US-PFIZER INC-2015380149

PATIENT
  Age: 45 Year
  Sex: Male
  Weight: 99 kg

DRUGS (3)
  1. LYRICA [Suspect]
     Active Substance: PREGABALIN
  2. DILANTIN SODIUM [Concomitant]
     Active Substance: PHENYTOIN SODIUM
     Indication: SEIZURE
     Dosage: 100 MG, UNK
  3. KEPPRA [Suspect]
     Active Substance: LEVETIRACETAM

REACTIONS (1)
  - Generalised tonic-clonic seizure [Unknown]

NARRATIVE: CASE EVENT DATE: 20151104
